FAERS Safety Report 12452202 (Version 1)
Quarter: 2016Q2

REPORT INFORMATION
  Report Type: Report from Study
  Country: JP (occurrence: JP)
  Receive Date: 20160609
  Receipt Date: 20160609
  Transmission Date: 20160815
  Serious: Yes (Death, Hospitalization, Other)
  Sender: FDA-Public Use
  Company Number: JP-ELI_LILLY_AND_COMPANY-17359597

PATIENT
  Age: 73 Year
  Sex: Female
  Weight: 51 kg

DRUGS (11)
  1. CPT-11 [Suspect]
     Active Substance: IRINOTECAN
     Indication: COLON CANCER
     Dosage: 147.1 MG, WEEKLY (1/W)
     Route: 042
     Dates: start: 20090511, end: 20090511
  2. CPT-11 [Suspect]
     Active Substance: IRINOTECAN
     Dosage: 146.4 MG, WEEKLY (1/W)
     Route: 042
     Dates: start: 20090518, end: 20090601
  3. CPT-11 [Suspect]
     Active Substance: IRINOTECAN
     Dosage: 137.6 MG, WEEKLY (1/W)
     Route: 042
     Dates: start: 20090824, end: 20090831
  4. DIPHENHYDRAMINE. [Concomitant]
     Active Substance: DIPHENHYDRAMINE
     Indication: PREMEDICATION
     Dosage: TABS
     Route: 048
     Dates: start: 20090511
  5. BLOPRESS [Concomitant]
     Active Substance: CANDESARTAN CILEXETIL
     Indication: HYPERTENSION
     Dosage: 8 MG, QD
     Route: 048
  6. CETUXIMAB [Suspect]
     Active Substance: CETUXIMAB
     Indication: COLON CANCER
     Dosage: 588.4 MG, WEEKLY (1/W)
     Route: 042
     Dates: start: 20090511, end: 20090511
  7. CPT-11 [Suspect]
     Active Substance: IRINOTECAN
     Dosage: 146.4 MG, WEEKLY (1/W)
     Route: 042
     Dates: start: 20090629, end: 20090707
  8. CETUXIMAB [Suspect]
     Active Substance: CETUXIMAB
     Dosage: 366 MG, WEEKLY (1/W)
     Route: 042
     Dates: start: 20090518, end: 20090707
  9. CETUXIMAB [Suspect]
     Active Substance: CETUXIMAB
     Dosage: 344 MG, WEEKLY (1/W)
     Route: 042
     Dates: start: 20090803, end: 20090831
  10. DEXAMETHASONE SODIUM PHOSPHATE. [Concomitant]
     Active Substance: DEXAMETHASONE SODIUM PHOSPHATE
     Indication: PREMEDICATION
     Dosage: 10 MG, QWK
     Route: 042
     Dates: start: 20090511
  11. GRANISETRON [Concomitant]
     Active Substance: GRANISETRON
     Indication: PROPHYLAXIS OF NAUSEA AND VOMITING
     Dosage: INJECTION
     Route: 065
     Dates: start: 20090511

REACTIONS (7)
  - Jaundice [Unknown]
  - Ascites [Unknown]
  - Decreased appetite [Unknown]
  - Malignant ascites [Unknown]
  - Malignant neoplasm progression [Fatal]
  - White blood cell count decreased [Not Recovered/Not Resolved]
  - Hepatic failure [Unknown]

NARRATIVE: CASE EVENT DATE: 20090906
